FAERS Safety Report 12873720 (Version 3)
Quarter: 2018Q1

REPORT INFORMATION
  Report Type: Report from Study
  Country: US (occurrence: US)
  Receive Date: 20161021
  Receipt Date: 20180105
  Transmission Date: 20180508
  Serious: No
  Sender: FDA-Public Use
  Company Number: US-AMGEN-USASL2016141833

PATIENT
  Age: 73 Year
  Sex: Female
  Weight: 107.94 kg

DRUGS (1)
  1. REPATHA [Suspect]
     Active Substance: EVOLOCUMAB
     Indication: BLOOD CHOLESTEROL INCREASED
     Dosage: 140 MG, Q2WK
     Route: 058
     Dates: start: 20161002

REACTIONS (2)
  - Circumstance or information capable of leading to medication error [Unknown]
  - Inappropriate schedule of drug administration [Unknown]
